FAERS Safety Report 4915097-X (Version None)
Quarter: 2006Q1

REPORT INFORMATION
  Report Type: 
  Country: None (occurrence: None)
  Receive Date: 20060217
  Receipt Date: 20060126
  Transmission Date: 20060701
  Serious: Yes (Other)
  Sender: FDA-Public Use
  Company Number: PHNU2006DE00670

PATIENT
  Sex: Female

DRUGS (1)
  1. FEMARA [Suspect]
     Indication: BREAST CANCER FEMALE
     Dosage: 2.5 MG, QD
     Route: 048
     Dates: start: 20051201

REACTIONS (3)
  - MACULOPATHY [None]
  - RETINAL DISORDER [None]
  - VISUAL FIELD DEFECT [None]
